FAERS Safety Report 8347945-8 (Version None)
Quarter: 2012Q2

REPORT INFORMATION
  Report Type: 
  Country: None (occurrence: None)
  Receive Date: 20120509
  Receipt Date: 20120504
  Transmission Date: 20120825
  Serious: Yes (Hospitalization)
  Sender: FDA-Public Use
  Company Number: US-B.I. PHARMACEUTICALS,INC./RIDGEFIELD-2012-BP-10144BP

PATIENT
  Sex: Female

DRUGS (3)
  1. PLAVIX [Suspect]
     Indication: ANGIOPATHY
     Dosage: 75 MG
     Route: 048
  2. MEDICATION NOT FURTHER SPECIFIED [Concomitant]
  3. CATAPRES-TTS-1 [Suspect]
     Indication: HYPERTENSION
     Route: 061
     Dates: start: 20100101

REACTIONS (3)
  - MASS [None]
  - MYOCARDIAL INFARCTION [None]
  - CONTUSION [None]
